FAERS Safety Report 24961401 (Version 1)
Quarter: 2025Q1

REPORT INFORMATION
  Report Type: Spontaneous
  Country: US (occurrence: None)
  Receive Date: 20250212
  Receipt Date: 20250212
  Transmission Date: 20250408
  Serious: Yes (Other)
  Sender: FDA-CTU
  Company Number: None

PATIENT
  Age: 55 Year
  Sex: Female

DRUGS (7)
  1. ABILIFY MAINTENA [Suspect]
     Active Substance: ARIPIPRAZOLE
     Dosage: FREQUENCY : MONTHLY;?
     Route: 030
  2. LISINOPRIL [Concomitant]
     Active Substance: LISINOPRIL
  3. ALLOPURINOL [Concomitant]
     Active Substance: ALLOPURINOL
  4. FLONASE [Concomitant]
     Active Substance: FLUTICASONE PROPIONATE
  5. LIPITOR [Concomitant]
     Active Substance: ATORVASTATIN CALCIUM
  6. VITAMINS [Concomitant]
     Active Substance: VITAMINS
  7. VITAMIN D3 [Concomitant]
     Active Substance: CHOLECALCIFEROL

REACTIONS (1)
  - Angioedema [None]

NARRATIVE: CASE EVENT DATE: 20241122
